FAERS Safety Report 8397584-8 (Version None)
Quarter: 2012Q2

REPORT INFORMATION
  Report Type: 
  Country: None (occurrence: None)
  Receive Date: 20120531
  Receipt Date: 20120522
  Transmission Date: 20120825
  Serious: Yes (Hospitalization)
  Sender: FDA-Public Use
  Company Number: US-JNJFOC-20120306735

PATIENT
  Sex: Female

DRUGS (2)
  1. REMICADE [Suspect]
     Indication: RHEUMATOID ARTHRITIS
     Route: 042
     Dates: start: 20080101
  2. METHOTREXATE [Suspect]
     Indication: EXOSTOSIS
     Route: 008
     Dates: start: 20120307

REACTIONS (4)
  - CHEST DISCOMFORT [None]
  - EXOSTOSIS [None]
  - PULMONARY THROMBOSIS [None]
  - MALAISE [None]
